FAERS Safety Report 17233541 (Version 1)
Quarter: 2020Q1

REPORT INFORMATION
  Report Type: Report from Study
  Country: US (occurrence: US)
  Receive Date: 20200105
  Receipt Date: 20200105
  Transmission Date: 20200409
  Serious: Yes (Other)
  Sender: FDA-Public Use
  Company Number: US-TAIHO ONCOLOGY  INC-EU-2019-04384

PATIENT
  Age: 49 Year
  Sex: Male
  Weight: 74.91 kg

DRUGS (3)
  1. LONSURF [Suspect]
     Active Substance: TIPIRACIL HYDROCHLORIDE\TRIFLURIDINE
     Indication: COLON CANCER
     Dosage: 20 MG/8.19 MG AND 15 MG/6.14 MG TABLETS.?APPROXIMATELY CYCLE NUMBER 1-6
     Route: 048
     Dates: start: 201907, end: 20191227
  2. LONSURF [Suspect]
     Active Substance: TIPIRACIL HYDROCHLORIDE\TRIFLURIDINE
     Indication: METASTASES TO LUNG
  3. LONSURF [Suspect]
     Active Substance: TIPIRACIL HYDROCHLORIDE\TRIFLURIDINE
     Indication: METASTASES TO LIVER

REACTIONS (10)
  - Platelet count decreased [Unknown]
  - Intentional product use issue [Unknown]
  - Jaundice [Unknown]
  - Blood bilirubin increased [Unknown]
  - Ascites [Unknown]
  - Hepatic failure [Unknown]
  - Blood albumin decreased [Unknown]
  - Cough [Not Recovered/Not Resolved]
  - Oedema peripheral [Unknown]
  - Hepatic enzyme increased [Unknown]

NARRATIVE: CASE EVENT DATE: 2019
